FAERS Safety Report 16173804 (Version 1)
Quarter: 2019Q2

REPORT INFORMATION
  Report Type: Spontaneous
  Country: US (occurrence: US)
  Receive Date: 20190305
  Receipt Date: 20190305
  Transmission Date: 20190711
  Serious: Yes (Death, Hospitalization)
  Sender: FDA-Public Use
  Company Number: None

PATIENT
  Age: 12 Year
  Sex: Female
  Weight: 38.4 kg

DRUGS (20)
  1. DAUNORUBICIN [Suspect]
     Active Substance: DAUNORUBICIN
     Dates: end: 20100309
  2. MORPHINE [Concomitant]
     Active Substance: MORPHINE
  3. CYTARABINE. [Suspect]
     Active Substance: CYTARABINE
     Dates: end: 20100524
  4. HEPARIN [Concomitant]
     Active Substance: HEPARIN SODIUM
  5. VASOPRESSIN. [Concomitant]
     Active Substance: VASOPRESSIN
  6. INSULIN [Concomitant]
     Active Substance: INSULIN NOS
  7. AMICAN [Concomitant]
  8. DOBUTAMINE [Concomitant]
     Active Substance: DOBUTAMINE\DOBUTAMINE HYDROCHLORIDE
  9. MILRINONE [Concomitant]
     Active Substance: MILRINONE
  10. CALCIUM CHLORIDE. [Concomitant]
     Active Substance: CALCIUM CHLORIDE
  11. OCTEOLIDE [Concomitant]
  12. SODIUM BICARB [Concomitant]
     Active Substance: SODIUM BICARBONATE
  13. VERSED [Concomitant]
     Active Substance: MIDAZOLAM HYDROCHLORIDE
  14. ATIVAN [Concomitant]
     Active Substance: LORAZEPAM
  15. EPINEPHRINE. [Concomitant]
     Active Substance: EPINEPHRINE
  16. POTASSIUM [Concomitant]
     Active Substance: POTASSIUM
  17. ETOPOSIDE (VP-16) [Suspect]
     Active Substance: ETOPOSIDE
     Dates: end: 20100412
  18. MITOXANTRONE HYDROCHLORIDE. [Suspect]
     Active Substance: MITOXANTRONE HYDROCHLORIDE
     Dates: end: 20100526
  19. FENTANYL. [Concomitant]
     Active Substance: FENTANYL
  20. LASIX [Concomitant]
     Active Substance: FUROSEMIDE

REACTIONS (14)
  - Hypotension [None]
  - Serum ferritin increased [None]
  - Generalised tonic-clonic seizure [None]
  - Febrile neutropenia [None]
  - Colitis [None]
  - Cardiomyopathy [None]
  - Respiratory distress [None]
  - Subdural haemorrhage [None]
  - Cardiogenic shock [None]
  - Escherichia infection [None]
  - Enterococcal infection [None]
  - Cytomegalovirus viraemia [None]
  - Pathogen resistance [None]
  - Blood triglycerides increased [None]

NARRATIVE: CASE EVENT DATE: 20100821
